FAERS Safety Report 13909985 (Version 2)
Quarter: 2017Q4

REPORT INFORMATION
  Report Type: Report from Study
  Country: US (occurrence: US)
  Receive Date: 20170828
  Receipt Date: 20171103
  Transmission Date: 20180320
  Serious: Yes (Hospitalization, Other)
  Sender: FDA-Public Use
  Company Number: PHEH2017US027158

PATIENT
  Age: 35 Year
  Sex: Female
  Weight: 47 kg

DRUGS (1)
  1. GILENYA [Suspect]
     Active Substance: FINGOLIMOD HYDROCHLORIDE
     Indication: MULTIPLE SCLEROSIS
     Dosage: 0.5 MG, QD
     Route: 048
     Dates: start: 20160829

REACTIONS (13)
  - Epileptic aura [Unknown]
  - Vertigo [Unknown]
  - Confusional state [Unknown]
  - Asthenia [Unknown]
  - Partial seizures [Unknown]
  - Emotional disorder [Unknown]
  - Focal dyscognitive seizures [Unknown]
  - Status epilepticus [Recovered/Resolved with Sequelae]
  - Dyskinesia [Unknown]
  - Generalised tonic-clonic seizure [Unknown]
  - Muscle spasms [Unknown]
  - Memory impairment [Unknown]
  - Muscle rigidity [Unknown]

NARRATIVE: CASE EVENT DATE: 20170816
